FAERS Safety Report 9827047 (Version 3)
Quarter: 2014Q1

REPORT INFORMATION
  Report Type: Spontaneous
  Country: US (occurrence: US)
  Receive Date: 20140117
  Receipt Date: 20140127
  Transmission Date: 20141002
  Serious: No
  Sender: FDA-Public Use
  Company Number: US-TEVA-456819USA

PATIENT
  Sex: Male

DRUGS (6)
  1. PROAIR HFA [Suspect]
     Route: 055
     Dates: start: 2013
  2. ASMANEX [Concomitant]
  3. INSULIN [Concomitant]
     Indication: DIABETES MELLITUS
  4. BENZONATATE [Concomitant]
  5. DOXYCYCLINE [Concomitant]
  6. PRILOSEC [Concomitant]

REACTIONS (8)
  - Malaise [Not Recovered/Not Resolved]
  - Feeling abnormal [Not Recovered/Not Resolved]
  - Throat irritation [Not Recovered/Not Resolved]
  - Cough [Not Recovered/Not Resolved]
  - Diarrhoea [Recovering/Resolving]
  - Food intolerance [Recovering/Resolving]
  - Device malfunction [Recovered/Resolved]
  - Increased upper airway secretion [Not Recovered/Not Resolved]
